FAERS Safety Report 5483893-9 (Version None)
Quarter: 2007Q4

REPORT INFORMATION
  Report Type: 
  Country: None (occurrence: None)
  Receive Date: 20071009
  Receipt Date: 20070924
  Transmission Date: 20080405
  Serious: Yes (Hospitalization, Disabling)
  Sender: FDA-Public Use
  Company Number: ENT 2006-0105

PATIENT
  Age: 84 Year
  Sex: Male

DRUGS (13)
  1. ENTACAPONE [Suspect]
     Indication: PARKINSON'S DISEASE
     Dosage: 200 MG; ORAL, 400 MG (200MG, 2 IN 1 D); ORAL, 600 MG (200MG, 3 IN 1 D) ORAL,
     Route: 048
     Dates: start: 20060718, end: 20060718
  2. ENTACAPONE [Suspect]
     Indication: PARKINSON'S DISEASE
     Dosage: 200 MG; ORAL, 400 MG (200MG, 2 IN 1 D); ORAL, 600 MG (200MG, 3 IN 1 D) ORAL,
     Route: 048
     Dates: start: 20060719, end: 20060719
  3. ENTACAPONE [Suspect]
     Indication: PARKINSON'S DISEASE
     Dosage: 200 MG; ORAL, 400 MG (200MG, 2 IN 1 D); ORAL, 600 MG (200MG, 3 IN 1 D) ORAL,
     Route: 048
     Dates: start: 20060720, end: 20060720
  4. WARFARIN SODIUM [Suspect]
     Dosage: VARIOUS DOSE;
  5. MADOPAR [Concomitant]
  6. QUININE SULFATE [Concomitant]
  7. RAMIPRIL [Concomitant]
  8. FALODIPINE MR [Concomitant]
  9. AMIODARONE HYDROCHLORIDE [Concomitant]
  10. FUROSEMIDE [Concomitant]
  11. TADALAFIL [Concomitant]
  12. ALSASOLYN MR [Concomitant]
  13. DIGOXIN [Concomitant]

REACTIONS (4)
  - CONTUSION [None]
  - DRUG INTERACTION [None]
  - INTERNATIONAL NORMALISED RATIO INCREASED [None]
  - RECTAL HAEMORRHAGE [None]
